FAERS Safety Report 11803825 (Version 2)
Quarter: 2016Q1

REPORT INFORMATION
  Report Type: Report from Study
  Country: BR (occurrence: BR)
  Receive Date: 20151204
  Receipt Date: 20160308
  Transmission Date: 20160525
  Serious: Yes (Other)
  Sender: FDA-Public Use
  Company Number: BR-ABBVIE-15K-020-1511094-00

PATIENT
  Sex: Female
  Weight: 89 kg

DRUGS (3)
  1. HUMIRA [Suspect]
     Active Substance: ADALIMUMAB
     Indication: PSORIASIS
     Dosage: LOADING DOSE, WEEK 0
     Route: 058
     Dates: start: 20120801, end: 20120801
  2. HUMIRA [Suspect]
     Active Substance: ADALIMUMAB
     Route: 058
     Dates: start: 201508
  3. HUMIRA [Suspect]
     Active Substance: ADALIMUMAB
     Dosage: MAINTENANCE DOSE
     Route: 058
     Dates: end: 201507

REACTIONS (7)
  - Weight increased [Recovering/Resolving]
  - Hypertension [Unknown]
  - Depression [Unknown]
  - Zinc deficiency [Unknown]
  - Hypovitaminosis [Unknown]
  - Protein deficiency [Unknown]
  - Psoriasis [Recovered/Resolved]

NARRATIVE: CASE EVENT DATE: 2005
